FAERS Safety Report 10519752 (Version 1)
Quarter: 2014Q4

REPORT INFORMATION
  Report Type: Other
  Country: AU (occurrence: AU)
  Receive Date: 20141015
  Receipt Date: 20141015
  Transmission Date: 20150528
  Serious: Yes (Death)
  Sender: FDA-Public Use
  Company Number: AU-BRISTOL-MYERS SQUIBB COMPANY-21494109

PATIENT
  Age: 52 Year
  Sex: Male

DRUGS (14)
  1. METHAMPHETAMINE HCL [Suspect]
     Active Substance: METHAMPHETAMINE HYDROCHLORIDE
  2. METOCLOPRAMIDE HCL [Suspect]
     Active Substance: METOCLOPRAMIDE HYDROCHLORIDE
  3. DIAZEPAM. [Suspect]
     Active Substance: DIAZEPAM
  4. CODEINE [Suspect]
     Active Substance: CODEINE
  5. DULOXETINE HCL [Suspect]
     Active Substance: DULOXETINE HYDROCHLORIDE
  6. PARACETAMOL [Suspect]
     Active Substance: ACETAMINOPHEN
  7. ARIPIPRAZOLE. [Suspect]
     Active Substance: ARIPIPRAZOLE
  8. LAMOTRIGINE. [Suspect]
     Active Substance: LAMOTRIGINE
  9. PHOLCODINE [Suspect]
     Active Substance: PHOLCODINE
  10. PROPANOL [Suspect]
     Active Substance: PROPRANOLOL HYDROCHLORIDE
  11. CHLORPHENIRAMINE [Suspect]
     Active Substance: CHLORPHENIRAMINE
  12. PROPOXYPHENE. [Suspect]
     Active Substance: PROPOXYPHENE HYDROCHLORIDE
  13. MORPHINE SULFATE. [Suspect]
     Active Substance: MORPHINE SULFATE
  14. NITRAZEPAM [Suspect]
     Active Substance: NITRAZEPAM

REACTIONS (2)
  - Arteriosclerosis coronary artery [None]
  - Toxicity to various agents [Fatal]
